FAERS Safety Report 7725466-0 (Version None)
Quarter: 2011Q3

REPORT INFORMATION
  Report Type: 
  Country: None (occurrence: None)
  Receive Date: 20110902
  Receipt Date: 20110823
  Transmission Date: 20111222
  Serious: Yes (Other)
  Sender: FDA-Public Use
  Company Number: US-RANBAXY-2011RR-47269

PATIENT
  Sex: Female

DRUGS (10)
  1. DEXAMETHASONE [Suspect]
     Dosage: UNK
     Route: 065
     Dates: start: 20080601
  2. CIPROFLOXACIN [Suspect]
     Indication: INFECTION
     Dosage: 500 MG, UNK
     Route: 048
  3. PREDNISOLONE [Suspect]
     Indication: INFLAMMATION
     Dosage: UNK
     Route: 065
     Dates: start: 20070801
  4. LEVAQUIN [Suspect]
     Indication: WOUND INFECTION
     Dosage: 500 MG, UNK
     Route: 048
     Dates: start: 20081015
  5. LEVAQUIN [Suspect]
     Indication: TOOTH INFECTION
     Dosage: 500 MG, UNK
     Route: 048
     Dates: start: 20081121
  6. LEVAQUIN [Suspect]
     Dosage: 500 MG, UNK
     Route: 048
     Dates: start: 20090427
  7. LEVAQUIN [Suspect]
     Dosage: 500 MG, UNK
     Route: 048
     Dates: start: 20090506
  8. LEVAQUIN [Suspect]
     Dosage: 500 MG, UNK
     Route: 048
     Dates: start: 20090517
  9. LEVAQUIN [Suspect]
     Indication: SINUSITIS
     Dosage: 500 MG, UNK
     Route: 048
     Dates: start: 20080414
  10. DEXAMETHASONE [Suspect]
     Indication: INFLAMMATION
     Dosage: UNK
     Route: 065
     Dates: start: 20080101

REACTIONS (3)
  - TENOSYNOVITIS STENOSANS [None]
  - ROTATOR CUFF SYNDROME [None]
  - TENDON RUPTURE [None]
